FAERS Safety Report 8065931-2 (Version None)
Quarter: 2012Q1

REPORT INFORMATION
  Report Type: 
  Country: None (occurrence: None)
  Receive Date: 20120124
  Receipt Date: 20120117
  Transmission Date: 20120608
  Serious: Yes (Hospitalization, Other)
  Sender: FDA-Public Use
  Company Number: FR-PFIZER INC-2009303282

PATIENT
  Age: 42 Year
  Sex: Male

DRUGS (6)
  1. ATORVASTATIN CALCIUM [Suspect]
     Indication: DYSLIPIDAEMIA
     Dosage: UNK
     Route: 048
     Dates: start: 20070318, end: 20081024
  2. IRBESARTAN [Concomitant]
  3. BISOPROLOL FUMARATE [Concomitant]
     Dosage: UNK
     Dates: start: 19850101
  4. RAMIPRIL [Suspect]
     Dosage: 10 MG, UNK
     Route: 048
     Dates: start: 20070318, end: 20081024
  5. PLAVIX [Concomitant]
     Dosage: UNK
     Dates: start: 20070318, end: 20081024
  6. ASPIRIN [Concomitant]
     Dosage: UNK
     Dates: start: 20070318

REACTIONS (15)
  - MALNUTRITION [None]
  - PANCREATIC CYST [None]
  - PANCREATITIS NECROTISING [None]
  - SUBDIAPHRAGMATIC ABSCESS [None]
  - TOXIC SHOCK SYNDROME [None]
  - BRADYCARDIA [None]
  - FISTULA [None]
  - DEHYDRATION [None]
  - HYPOGLYCAEMIA [None]
  - MULTI-ORGAN FAILURE [None]
  - STEATORRHOEA [None]
  - SHOCK HAEMORRHAGIC [None]
  - RENAL COLIC [None]
  - WOUND DEHISCENCE [None]
  - PYELONEPHRITIS [None]
